FAERS Safety Report 25970720 (Version 1)
Quarter: 2025Q4

REPORT INFORMATION
  Report Type: Report from Study
  Country: US (occurrence: US)
  Receive Date: 20251028
  Receipt Date: 20251028
  Transmission Date: 20260117
  Serious: No
  Sender: INCYTE
  Company Number: US-EVENT-004698

PATIENT

DRUGS (1)
  1. JAKAFI [Suspect]
     Active Substance: RUXOLITINIB
     Indication: Myelofibrosis
     Dosage: 15 MILLIGRAM, BID
     Route: 065

REACTIONS (7)
  - Somnolence [Unknown]
  - Ocular hyperaemia [Unknown]
  - Glassy eyes [Unknown]
  - Skin hyperpigmentation [Unknown]
  - Headache [Unknown]
  - Constipation [Unknown]
  - Hypertension [Unknown]
